FAERS Safety Report 11376572 (Version 3)
Quarter: 2019Q4

REPORT INFORMATION
  Report Type: Spontaneous
  Country: US (occurrence: US)
  Receive Date: 20150813
  Receipt Date: 20191021
  Transmission Date: 20200122
  Serious: Yes (Hospitalization, Other)
  Sender: FDA-Public Use
  Company Number: US-PFIZER INC-2015264250

PATIENT
  Age: 74 Year
  Sex: Male

DRUGS (2)
  1. VIAGRA [Suspect]
     Active Substance: SILDENAFIL CITRATE
     Dosage: 100 MG, WEEKLY
     Dates: start: 20061129, end: 200701
  2. VIAGRA [Suspect]
     Active Substance: SILDENAFIL CITRATE
     Indication: ERECTILE DYSFUNCTION
     Dosage: UNK, AS NEEDED
     Route: 048
     Dates: start: 200606

REACTIONS (3)
  - Malignant melanoma [Unknown]
  - Neoplasm progression [Unknown]
  - Metastatic malignant melanoma [Unknown]

NARRATIVE: CASE EVENT DATE: 20130910
